FAERS Safety Report 7495749-0 (Version None)
Quarter: 2011Q2

REPORT INFORMATION
  Report Type: 
  Country: None (occurrence: None)
  Receive Date: 20110523
  Receipt Date: 20110509
  Transmission Date: 20111010
  Serious: Yes (Other)
  Sender: FDA-Public Use
  Company Number: US-ELI_LILLY_AND_COMPANY-US201105002570

PATIENT
  Age: 43 Year
  Sex: Male
  Weight: 180.7 kg

DRUGS (3)
  1. CYMBALTA [Suspect]
     Indication: DEPRESSION
     Dosage: 30 MG, UNK
     Dates: start: 20110111, end: 20110124
  2. NORVASC [Concomitant]
     Indication: HYPERTENSION
     Dosage: 10 MG, QD
     Dates: start: 20110201
  3. CYMBALTA [Suspect]
     Dosage: 60 MG, UNK
     Dates: start: 20110125

REACTIONS (6)
  - SEDATION [None]
  - INSOMNIA [None]
  - DRUG INEFFECTIVE [None]
  - ANHEDONIA [None]
  - WEIGHT INCREASED [None]
  - BLINDNESS UNILATERAL [None]
